FAERS Safety Report 5087794-X (Version None)
Quarter: 2006Q3

REPORT INFORMATION
  Report Type: 
  Country: None (occurrence: None)
  Receive Date: 20060824
  Receipt Date: 20060817
  Transmission Date: 20061208
  Serious: Yes (Hospitalization)
  Sender: FDA-Public Use
  Company Number: FR-ROCHE-460062

PATIENT
  Age: 91 Year
  Sex: Female
  Weight: 50 kg

DRUGS (8)
  1. LOXEN [Suspect]
     Indication: DRUG USE FOR UNKNOWN INDICATION
     Route: 048
     Dates: end: 20060214
  2. LASILIX [Suspect]
     Indication: DRUG USE FOR UNKNOWN INDICATION
     Route: 048
     Dates: end: 20060212
  3. TANAKAN [Suspect]
     Indication: DRUG USE FOR UNKNOWN INDICATION
     Route: 048
     Dates: end: 20060212
  4. LAMALINE [Concomitant]
  5. DAFALGAN [Concomitant]
  6. OMEPRAZOLE [Concomitant]
  7. ATARAX [Concomitant]
  8. PREVISCAN [Concomitant]

REACTIONS (2)
  - CUTANEOUS VASCULITIS [None]
  - SKIN NECROSIS [None]
